FAERS Safety Report 16230119 (Version 1)
Quarter: 2019Q2

REPORT INFORMATION
  Report Type: Spontaneous
  Country: FR (occurrence: FR)
  Receive Date: 20190423
  Receipt Date: 20190423
  Transmission Date: 20190711
  Serious: Yes (Life-Threatening)
  Sender: FDA-Public Use
  Company Number: FR-PURDUE-GBR-2019-0066017

PATIENT
  Age: 23 Year
  Sex: Female
  Weight: 97.5 kg

DRUGS (3)
  1. MORPHINE SULFATE. [Suspect]
     Active Substance: MORPHINE SULFATE
     Indication: NEURALGIA
     Dosage: INCONNUE
     Route: 048
     Dates: start: 20190201, end: 20190201
  2. DAFALGAN CODEINE [Suspect]
     Active Substance: ACETAMINOPHEN\CODEINE PHOSPHATE
     Indication: PAIN
     Dosage: 8 DF, DAILY
     Route: 048
     Dates: end: 20190204
  3. LYRICA [Suspect]
     Active Substance: PREGABALIN
     Indication: NEURALGIA
     Dosage: UNK
     Route: 048

REACTIONS (3)
  - Drug abuse [Recovered/Resolved with Sequelae]
  - Drug dependence [Not Recovered/Not Resolved]
  - Coma [Recovered/Resolved]

NARRATIVE: CASE EVENT DATE: 20190201
